FAERS Safety Report 4897727-4 (Version None)
Quarter: 2005Q4

REPORT INFORMATION
  Report Type: 
  Country: None (occurrence: None)
  Receive Date: 20051223
  Receipt Date: 20050906
  Transmission Date: 20060501
  Serious: No
  Sender: FDA-Public Use
  Company Number: 05P-163-0310367-00

PATIENT
  Age: 43 Year
  Sex: Female
  Weight: 91 kg

DRUGS (10)
  1. HUMIRA [Suspect]
     Indication: RHEUMATOID ARTHRITIS
     Dosage: 40 MG,  1 IN 2 WK, PER ORAL
     Route: 048
     Dates: start: 20050810
  2. METHOTREXATE SODIUM [Concomitant]
  3. HYDROXYCHLOROQUINE PHOSPHATE [Concomitant]
  4. SULINDAC [Concomitant]
  5. PREDNISONE [Concomitant]
  6. LOTREL [Concomitant]
  7. NORTRIPTYLINE HCL [Concomitant]
  8. OXZEPAM [Concomitant]
  9. METHOCARBAMOL [Concomitant]
  10. VICODIN [Concomitant]

REACTIONS (1)
  - INJECTION SITE PAIN [None]
